FAERS Safety Report 10563927 (Version 2)
Quarter: 2015Q1

REPORT INFORMATION
  Report Type: Spontaneous
  Country: JP (occurrence: JP)
  Receive Date: 20141104
  Receipt Date: 20150210
  Transmission Date: 20150720
  Serious: Yes (Other)
  Sender: FDA-Public Use
  Company Number: JP-AMGEN-JPNSP2014084602

PATIENT
  Age: 94 Year
  Sex: Female

DRUGS (3)
  1. ELCITONIN [Concomitant]
     Active Substance: ELCATONIN
     Dosage: UNK
     Route: 065
  2. PRALIA [Suspect]
     Active Substance: DENOSUMAB
     Indication: OSTEOPOROSIS
     Dosage: UNK UNK, Q6MO
     Route: 023
     Dates: start: 201312
  3. RECALBON                           /06391801/ [Suspect]
     Active Substance: MINODRONIC ACID
     Indication: PRODUCT USED FOR UNKNOWN INDICATION
     Dosage: UNK
     Route: 065
     Dates: start: 201109, end: 201312

REACTIONS (2)
  - Osteonecrosis of jaw [Not Recovered/Not Resolved]
  - Tooth fracture [Unknown]

NARRATIVE: CASE EVENT DATE: 201410
